FAERS Safety Report 5256498-2 (Version None)
Quarter: 2007Q1

REPORT INFORMATION
  Report Type: 
  Country: None (occurrence: None)
  Receive Date: 20070306
  Receipt Date: 20070214
  Transmission Date: 20070707
  Serious: Yes (Hospitalization)
  Sender: FDA-Public Use
  Company Number: DE-AMGEN-UK212550

PATIENT
  Sex: Female

DRUGS (3)
  1. NEULASTA [Suspect]
     Indication: CHEMOTHERAPY
     Route: 065
     Dates: start: 20070209
  2. EPIRUBICIN [Concomitant]
     Route: 065
     Dates: start: 20070207
  3. CYCLOPHOSPHAMIDE [Concomitant]
     Route: 065
     Dates: start: 20070207

REACTIONS (3)
  - CATHETER RELATED INFECTION [None]
  - FEBRILE NEUTROPENIA [None]
  - PYREXIA [None]
